FAERS Safety Report 5369314-5 (Version None)
Quarter: 2007Q2

REPORT INFORMATION
  Report Type: 
  Country: None (occurrence: None)
  Receive Date: 20070625
  Receipt Date: 20070330
  Transmission Date: 20071010
  Serious: Yes (Hospitalization, Disabling)
  Sender: FDA-Public Use
  Company Number: US-ASTRAZENECA-2007UW05548

PATIENT
  Age: 18875 Day
  Sex: Female

DRUGS (26)
  1. CRESTOR [Suspect]
     Route: 048
     Dates: start: 20050125, end: 20070315
  2. TRICOR [Concomitant]
  3. GLYBURIDE [Concomitant]
  4. PAXIL [Concomitant]
  5. ASPIRIN [Concomitant]
  6. LASIX [Concomitant]
  7. LUNESTA [Concomitant]
  8. ADVAIR DISKUS 100/50 [Concomitant]
     Dosage: 250/50 1 PUFF BID
  9. ALBUTEROL [Concomitant]
     Dosage: 2 PUFFS Q4H PRN
  10. NOVOLIN 50/50 [Concomitant]
     Dosage: 64 UNITS AM/48 UNITS PM
  11. ATIVAN [Concomitant]
  12. CLARITIN [Concomitant]
  13. PLAVIX [Concomitant]
  14. POTASSIUM CHLORIDE [Concomitant]
     Dosage: 10 MEG ON MON. WED. + FRI.
  15. COREG [Concomitant]
  16. ALDACTONE [Concomitant]
  17. CLONIDINE [Concomitant]
  18. FLEXERIL [Concomitant]
  19. IMDUR [Concomitant]
  20. FOLIC ACID [Concomitant]
  21. NITROGLYCERIN [Concomitant]
     Route: 060
  22. COZAAR [Concomitant]
  23. PREVACID [Concomitant]
  24. PROCARDIA [Concomitant]
  25. REQUIP [Concomitant]
  26. LORCET-HD [Concomitant]
     Dosage: 10/650 1 TABL. Q4H PRN

REACTIONS (1)
  - RHABDOMYOLYSIS [None]
